FAERS Safety Report 5567387-8 (Version None)
Quarter: 2007Q4

REPORT INFORMATION
  Report Type: 
  Country: None (occurrence: None)
  Receive Date: 20071214
  Receipt Date: 20071205
  Transmission Date: 20080405
  Serious: Yes (Hospitalization)
  Sender: FDA-Public Use
  Company Number: 100#08#2007-05134

PATIENT
  Age: 36 Year
  Sex: Female

DRUGS (7)
  1. CYCLOSPORINE [Suspect]
     Indication: GRAFT VERSUS HOST DISEASE
     Dosage: 250 MG; 200 MG; 100 MG; 80 MG; 20 MG;
     Dates: start: 20030301
  2. CYCLOSPORINE [Suspect]
     Indication: PROPHYLAXIS
     Dosage: 250 MG; 200 MG; 100 MG; 80 MG; 20 MG;
     Dates: start: 20030301
  3. CYCLOSPORINE [Suspect]
     Indication: GRAFT VERSUS HOST DISEASE
     Dosage: 250 MG; 200 MG; 100 MG; 80 MG; 20 MG;
     Dates: start: 20040301
  4. CYCLOSPORINE [Suspect]
     Indication: PROPHYLAXIS
     Dosage: 250 MG; 200 MG; 100 MG; 80 MG; 20 MG;
     Dates: start: 20040301
  5. BUSULFAN (BUSULFAN)  (BUSULFAN) [Concomitant]
  6. CYCLOPHOSPHAMIDE [Concomitant]
  7. METHOTREXATE [Concomitant]

REACTIONS (8)
  - CONDITION AGGRAVATED [None]
  - GRAFT VERSUS HOST DISEASE [None]
  - HYPOAESTHESIA [None]
  - INFLAMMATION [None]
  - PAIN IN EXTREMITY [None]
  - SENSORY DISTURBANCE [None]
  - SPINAL CORD DISORDER [None]
  - WITHDRAWAL SYNDROME [None]
